FAERS Safety Report 10089349 (Version 2)
Quarter: 2014Q3

REPORT INFORMATION
  Report Type: Spontaneous
  Country: PT (occurrence: PT)
  Receive Date: 20140421
  Receipt Date: 20140714
  Transmission Date: 20150326
  Serious: Yes (Other)
  Sender: FDA-Public Use
  Company Number: PT-SA-2014SA044108

PATIENT
  Age: 56 Year
  Sex: Female
  Weight: 95 kg

DRUGS (5)
  1. ASPEGIC [Interacting]
     Active Substance: ASPIRIN DL-LYSINE
     Indication: PROPHYLAXIS
     Route: 048
  2. PLAVIX [Suspect]
     Active Substance: CLOPIDOGREL BISULFATE
     Indication: PROPHYLAXIS
     Route: 048
     Dates: start: 20140211
  3. RISIDON [Concomitant]
     Active Substance: METFORMIN HYDROCHLORIDE
     Indication: DIABETES MELLITUS
     Route: 048
  4. CRESTOR [Concomitant]
     Active Substance: ROSUVASTATIN CALCIUM
     Indication: HYPERCHOLESTEROLAEMIA
     Route: 048
     Dates: start: 201402
  5. SIMVASTATIN. [Concomitant]
     Active Substance: SIMVASTATIN
     Indication: HYPERCHOLESTEROLAEMIA
     Route: 048
     Dates: end: 201402

REACTIONS (6)
  - Drug interaction [Unknown]
  - Phlebitis [Recovered/Resolved]
  - Nodule [Recovered/Resolved]
  - Uterine haemorrhage [Recovered/Resolved]
  - Haematoma [Recovered/Resolved]
  - Telangiectasia [Recovered/Resolved]

NARRATIVE: CASE EVENT DATE: 201402
